FAERS Safety Report 9576925 (Version 1)
Quarter: 2013Q4

REPORT INFORMATION
  Report Type: Spontaneous
  Country: US (occurrence: US)
  Receive Date: 20131001
  Receipt Date: 20131001
  Transmission Date: 20140711
  Serious: No
  Sender: FDA-Public Use
  Company Number: US-AMGEN-USASP2013005084

PATIENT
  Age: 56 Year
  Sex: Female
  Weight: 64.4 kg

DRUGS (10)
  1. ENBREL [Suspect]
     Indication: RHEUMATOID ARTHRITIS
     Dosage: 50 MG, QWK
     Route: 058
  2. ONGLYZA [Concomitant]
     Dosage: 2.5 MG, UNK
  3. PANTOPRAZOLE [Concomitant]
     Dosage: 40 MG, UNK
  4. METOPROLOL [Concomitant]
     Dosage: 1 MG, UNK
  5. GABAPENTIN [Concomitant]
     Dosage: 100 MG, UNK
  6. GLYBURIDE [Concomitant]
     Dosage: 5 MG, UNK
  7. ASPIRIN [Concomitant]
     Dosage: 81 MG, UNK
  8. CITRACAL                           /00751520/ [Concomitant]
     Dosage: UNK,CHOC FUG
  9. IBUPROFEN [Concomitant]
     Dosage: 200 MG, UNK
  10. VITAMIN D                          /00107901/ [Concomitant]
     Dosage: 1000 UNIT, UNK

REACTIONS (3)
  - Cystitis [Unknown]
  - Urinary tract infection [Unknown]
  - Kidney infection [Unknown]
